FAERS Safety Report 9310252 (Version 5)
Quarter: 2013Q4

REPORT INFORMATION
  Report Type: Spontaneous
  Country: JP (occurrence: JP)
  Receive Date: 20130527
  Receipt Date: 20131212
  Transmission Date: 20140711
  Serious: Yes (Other)
  Sender: FDA-Public Use
  Company Number: PHHY2013JP051610

PATIENT
  Sex: Female

DRUGS (18)
  1. TEGRETOL [Suspect]
     Indication: DEPRESSION
     Dosage: 600 MG, DAILY
     Route: 048
  2. VALPROIC ACID [Suspect]
     Dosage: 800 MG, UNK
  3. TRIAZOLAM [Suspect]
     Dosage: 0.5 MG, UNK
  4. RISPERIDONE [Suspect]
     Dosage: 1 MG, DAILY
  5. RISPERIDONE [Suspect]
     Dosage: 10 MG, UNK
     Route: 048
  6. DEPAKENE-R [Suspect]
     Dosage: 800 MG, DAILY
     Route: 048
  7. AKIRIDEN [Suspect]
     Dosage: 2 MG, DAILY
     Route: 048
  8. SILECE [Suspect]
     Dosage: 4 MG, DAILY
     Route: 048
  9. PARULEON [Suspect]
     Dosage: 0.5 MG, DAILY
     Route: 048
  10. SERENACE [Suspect]
     Dosage: 6 MG, DAILY
     Route: 048
  11. CONTOMIN [Concomitant]
     Dosage: 50 MG, UNK
     Route: 048
  12. FLUNITRAZEPAM [Concomitant]
     Dosage: 4 MG, UNK
  13. BROMAZEPAM [Concomitant]
     Dosage: 10 MG, UNK
  14. OLANZAPINE [Concomitant]
     Dosage: UNK UKN, UNK
  15. QUETIAPINE [Concomitant]
     Dosage: UNK UKN, UNK
  16. CLOMIPRAMINE HCL [Concomitant]
     Dosage: 25 MG, UNK
  17. BIPERIDEN HYDROCHLORIDE [Concomitant]
     Dosage: 2 MG, UNK
  18. HALOPERIDOL [Concomitant]
     Dosage: 6 MG, UNK

REACTIONS (5)
  - Diabetes mellitus [Unknown]
  - Pre-eclampsia [Unknown]
  - Polyhydramnios [Unknown]
  - Delivery [Unknown]
  - Maternal exposure during pregnancy [Unknown]
